FAERS Safety Report 8599792-X (Version None)
Quarter: 2012Q3

REPORT INFORMATION
  Report Type: 
  Country: None (occurrence: None)
  Receive Date: 20120816
  Receipt Date: 20120530
  Transmission Date: 20120928
  Serious: No
  Sender: FDA-Public Use
  Company Number: US-009507513-1208USA003886

PATIENT

DRUGS (1)
  1. COPPERTONE KIDS PURE AND SIMPLE SPF-50 [Suspect]
     Indication: PRODUCT USED FOR UNKNOWN INDICATION
     Dosage: UNK, UNKNOWN
     Route: 061
     Dates: start: 20120501

REACTIONS (3)
  - SKIN EXFOLIATION [None]
  - DRY SKIN [None]
  - HYPERSENSITIVITY [None]
